FAERS Safety Report 25221102 (Version 1)
Quarter: 2025Q2

REPORT INFORMATION
  Report Type: Spontaneous
  Country: RU (occurrence: RU)
  Receive Date: 20250421
  Receipt Date: 20250421
  Transmission Date: 20250716
  Serious: Yes (Other)
  Sender: ROCHE
  Company Number: RU-ROCHE-10000257354

PATIENT
  Age: 44 Year
  Sex: Female

DRUGS (2)
  1. VEMURAFENIB [Suspect]
     Active Substance: VEMURAFENIB
     Indication: Metastases to lung
     Dosage: DAYS 1 TO 21, 7-DAY BREAK
     Route: 065
     Dates: start: 202301
  2. COBIMETINIB [Suspect]
     Active Substance: COBIMETINIB
     Indication: Metastases to lung
     Dosage: DAYS 1 TO 21, 7-DAY BREAK
     Route: 065
     Dates: start: 202301

REACTIONS (7)
  - Metastasis [Unknown]
  - Metastasis [Unknown]
  - Anaemia [Unknown]
  - Hepatitis toxic [Unknown]
  - Hypertensive crisis [Unknown]
  - Disease progression [Unknown]
  - Hypertension [Unknown]

NARRATIVE: CASE EVENT DATE: 20230206
